FAERS Safety Report 7730273-9 (Version None)
Quarter: 2011Q3

REPORT INFORMATION
  Report Type: 
  Country: None (occurrence: None)
  Receive Date: 20110906
  Receipt Date: 20110903
  Transmission Date: 20111222
  Serious: Yes (Death, Other)
  Sender: FDA-Public Use
  Company Number: PHHY2011CA01321

PATIENT
  Sex: Female

DRUGS (18)
  1. ATORVASTATIN [Concomitant]
     Dosage: 20 MG, QD
  2. FUROSEMIDE [Concomitant]
     Dosage: 40 MG, BID
  3. ALBUTEROL [Concomitant]
     Dosage: 100 UG, UNK
  4. SYMBICORT [Concomitant]
     Dosage: 200 MG, BID
  5. SENOKOT [Concomitant]
  6. SIMVASTATIN [Concomitant]
     Dosage: 40 MG, OD
     Route: 048
  7. WARFARIN SODIUM [Concomitant]
     Dosage: 2 MG, OD
     Route: 048
  8. ZOLEDRONOC ACID [Suspect]
     Dosage: UNK UKN, UNK
     Route: 042
     Dates: start: 20110124
  9. SPIRIVA [Concomitant]
     Dosage: 180 UG, QD
  10. CALCIUM CARBONATE [Concomitant]
     Dosage: 250 MG, QD
  11. CALCIUM CARBONATE [Concomitant]
     Dosage: 500 MG,OD
     Route: 048
  12. ZOLEDRONOC ACID [Suspect]
     Indication: OSTEOPOROSIS
     Dosage: UNK UKN, UNK
     Route: 042
     Dates: start: 20100118
  13. COZAAR [Concomitant]
     Dosage: 50 MG, QD
  14. DILTIAZEM [Concomitant]
     Dosage: 180 MG, QD
  15. VENTOLIN HFA [Concomitant]
     Dosage: 100 MG, PRN
  16. VITAMIN B-12 [Concomitant]
     Dosage: 1200 MG, OD
     Route: 048
  17. VITAMIN D [Concomitant]
     Dosage: 1000 U OD
  18. DOCUSATE [Concomitant]
     Dosage: 100 MG, BID

REACTIONS (4)
  - FALL [None]
  - ACCIDENT [None]
  - CARDIAC FAILURE CONGESTIVE [None]
  - LACERATION [None]
